FAERS Safety Report 7728065-X (Version None)
Quarter: 2011Q3

REPORT INFORMATION
  Report Type: 
  Country: None (occurrence: None)
  Receive Date: 20110905
  Receipt Date: 20110829
  Transmission Date: 20111222
  Serious: No
  Sender: FDA-Public Use
  Company Number: US-BIOGENIDEC-2011BI033359

PATIENT
  Age: 29 Year
  Sex: Female

DRUGS (1)
  1. TYSABRI [Suspect]
     Indication: MULTIPLE SCLEROSIS
     Route: 042
     Dates: start: 20110719

REACTIONS (5)
  - FEELING HOT [None]
  - DIARRHOEA [None]
  - ABDOMINAL PAIN UPPER [None]
  - HEADACHE [None]
  - MUSCLE SPASMS [None]
